FAERS Safety Report 14256355 (Version 1)
Quarter: 2017Q4

REPORT INFORMATION
  Report Type: Spontaneous
  Country: AU (occurrence: AU)
  Receive Date: 20171206
  Receipt Date: 20171206
  Transmission Date: 20180321
  Serious: Yes (Hospitalization, Other)
  Sender: FDA-Public Use
  Company Number: PHHY2017AU174952

PATIENT

DRUGS (1)
  1. ENTRESTO [Suspect]
     Active Substance: SACUBITRIL\VALSARTAN
     Indication: CARDIAC FAILURE
     Dosage: 97MG/103 MG
     Route: 065

REACTIONS (4)
  - Hypoxia [Unknown]
  - Hypotension [Unknown]
  - Sepsis [Recovered/Resolved]
  - Acute pulmonary oedema [Unknown]
